FAERS Safety Report 10813903 (Version 1)
Quarter: 2015Q1

REPORT INFORMATION
  Report Type: Report from Study
  Country: US (occurrence: US)
  Receive Date: 20150218
  Receipt Date: 20150218
  Transmission Date: 20150721
  Serious: No
  Sender: FDA-Public Use
  Company Number: US-ABBVIE-14K-163-1274756-00

PATIENT
  Age: 55 Year
  Sex: Male

DRUGS (8)
  1. OXYCODONE [Suspect]
     Active Substance: OXYCODONE
     Indication: PAIN
     Dosage: 5/325, EVERY SIX HOURS
  2. CRESTOR [Concomitant]
     Active Substance: ROSUVASTATIN CALCIUM
     Indication: BLOOD CHOLESTEROL
  3. DUREZOL [Concomitant]
     Active Substance: DIFLUPREDNATE
     Indication: IRITIS
  4. HUMIRA [Suspect]
     Active Substance: ADALIMUMAB
     Indication: ANKYLOSING SPONDYLITIS
     Dates: start: 20140813
  5. EPI [Concomitant]
     Active Substance: EPINEPHRINE
     Indication: HYPERSENSITIVITY
  6. DUREZOL [Concomitant]
     Active Substance: DIFLUPREDNATE
     Indication: IRITIS
     Dosage: 1% DROPS
  7. CIMBRIA [Concomitant]
     Indication: INTRAOCULAR PRESSURE INCREASED
  8. LYRICA [Suspect]
     Active Substance: PREGABALIN
     Indication: PAIN MANAGEMENT

REACTIONS (6)
  - Pain [Not Recovered/Not Resolved]
  - Tendon pain [Not Recovered/Not Resolved]
  - Back pain [Not Recovered/Not Resolved]
  - Meniscus injury [Not Recovered/Not Resolved]
  - Bone pain [Not Recovered/Not Resolved]
  - Drug ineffective [Unknown]

NARRATIVE: CASE EVENT DATE: 201408
